FAERS Safety Report 5224458-3 (Version None)
Quarter: 2007Q1

REPORT INFORMATION
  Report Type: 
  Country: None (occurrence: None)
  Receive Date: 20070130
  Receipt Date: 20070118
  Transmission Date: 20070707
  Serious: Yes (Other)
  Sender: FDA-Public Use
  Company Number: GB-PFIZER INC-2007004327

PATIENT
  Age: 35 Year
  Sex: Female

DRUGS (3)
  1. DEPO-PROVERA [Suspect]
  2. WARFARIN SODIUM [Interacting]
  3. ANTIHYPERTENSIVES [Concomitant]

REACTIONS (2)
  - DRUG INTERACTION [None]
  - DRUG LEVEL FLUCTUATING [None]
